FAERS Safety Report 8606776 (Version 3)
Quarter: 2013Q4

REPORT INFORMATION
  Report Type: Spontaneous
  Country: US (occurrence: US)
  Receive Date: 20120611
  Receipt Date: 20131129
  Transmission Date: 20140711
  Serious: Yes (Hospitalization, Disabling)
  Sender: FDA-Public Use
  Company Number: US-ASTRAZENECA-2012SE35655

PATIENT
  Age: 71 Year
  Sex: Female
  Weight: 64.9 kg

DRUGS (16)
  1. NEXIUM [Suspect]
     Indication: ULCER
     Dosage: ONCE A DAY
     Route: 048
  2. NEXIUM [Suspect]
     Indication: HIATUS HERNIA
     Dosage: ONCE A DAY
     Route: 048
  3. NEXIUM [Suspect]
     Indication: GASTROOESOPHAGEAL REFLUX DISEASE
     Dosage: ONCE A DAY
     Route: 048
  4. NEXIUM [Suspect]
     Indication: ULCER
     Dosage: OCCASIONALLY TWO PER DAY
     Route: 048
  5. NEXIUM [Suspect]
     Indication: HIATUS HERNIA
     Dosage: OCCASIONALLY TWO PER DAY
     Route: 048
  6. NEXIUM [Suspect]
     Indication: GASTROOESOPHAGEAL REFLUX DISEASE
     Dosage: OCCASIONALLY TWO PER DAY
     Route: 048
  7. NEXIUM [Suspect]
     Indication: ULCER
     Route: 048
     Dates: start: 20050518
  8. NEXIUM [Suspect]
     Indication: HIATUS HERNIA
     Route: 048
     Dates: start: 20050518
  9. NEXIUM [Suspect]
     Indication: GASTROOESOPHAGEAL REFLUX DISEASE
     Route: 048
     Dates: start: 20050518
  10. SIMVASTATIN [Concomitant]
  11. VERAPAMIL [Concomitant]
  12. DAILY VITAMINS [Concomitant]
  13. FIBERCON [Concomitant]
     Route: 048
  14. CALCIUM [Concomitant]
     Route: 048
  15. AMLODIPINE BESY BENAZEPRIL HCL [Concomitant]
     Dosage: 5-20 MG DAILY
     Route: 048
  16. ALENDRONATE SODIUM [Concomitant]
     Route: 048

REACTIONS (15)
  - Arrhythmia [Unknown]
  - Neck pain [Unknown]
  - Musculoskeletal stiffness [Unknown]
  - Thrombosis [Unknown]
  - Dyspnoea [Unknown]
  - Osteoporosis [Unknown]
  - Bone density decreased [Unknown]
  - Multiple fractures [Unknown]
  - Arthritis [Unknown]
  - Calcium deficiency [Unknown]
  - Cardiovascular disorder [Unknown]
  - Scoliosis [Unknown]
  - Musculoskeletal disorder [Unknown]
  - Osteoarthritis [Unknown]
  - Depression [Unknown]
